FAERS Safety Report 7492580-7 (Version None)
Quarter: 2011Q2

REPORT INFORMATION
  Report Type: 
  Country: None (occurrence: None)
  Receive Date: 20110519
  Receipt Date: 20110420
  Transmission Date: 20111010
  Serious: No
  Sender: FDA-Public Use
  Company Number: US-BAYER-2011-035244

PATIENT
  Age: 81 Year
  Sex: Male
  Weight: 57 kg

DRUGS (2)
  1. ZOLEDRONIC ACID [Concomitant]
  2. ALEVE (CAPLET) [Suspect]
     Indication: BACK PAIN
     Dosage: 440 MG, QD, BOTTLE COUNT 24S
     Route: 048

REACTIONS (1)
  - BACK PAIN [None]
